FAERS Safety Report 4323604-3 (Version None)
Quarter: 2004Q1

REPORT INFORMATION
  Report Type: 
  Country: None (occurrence: None)
  Receive Date: 20040322
  Receipt Date: 20040310
  Transmission Date: 20041129
  Serious: Yes (Hospitalization)
  Sender: FDA-Public Use
  Company Number: GB-JNJFOC-20040302445

PATIENT
  Age: 71 Year
  Sex: Female

DRUGS (11)
  1. REMICADE [Suspect]
     Indication: RHEUMATOID ARTHRITIS
     Dosage: INTRAVENOUS
     Route: 042
     Dates: start: 20020724
  2. METHOTREXATE [Concomitant]
  3. DEFLAZACORT (DEFLAZACORT) [Concomitant]
  4. FOSAMAX [Concomitant]
  5. ASPIRIN [Concomitant]
  6. SIMVASTATIN [Concomitant]
  7. DIHYDROCODEINE (DIHYDROCODEINE) [Concomitant]
  8. CALCITRIOL [Concomitant]
  9. IMDUR [Concomitant]
  10. THYROXINE (LEVOTHYROXINE SODIUM) [Concomitant]
  11. FOLIC ACID [Concomitant]

REACTIONS (2)
  - ATRIAL FIBRILLATION [None]
  - PNEUMONIA [None]
